FAERS Safety Report 13631591 (Version 1)
Quarter: 2017Q2

REPORT INFORMATION
  Report Type: Spontaneous
  Country: GB (occurrence: GB)
  Receive Date: 20170608
  Receipt Date: 20170608
  Transmission Date: 20170830
  Serious: Yes (Life-Threatening, Hospitalization, Disabling)
  Sender: FDA-Public Use
  Company Number: GB-TEVA-776781ACC

PATIENT
  Age: 46 Year
  Sex: Male
  Weight: 82 kg

DRUGS (3)
  1. COLCHICINE. [Suspect]
     Active Substance: COLCHICINE
     Indication: GOUT
     Dosage: 1000 MICROGRAM DAILY;
     Route: 048
     Dates: start: 20150301, end: 20160315
  2. ALLOPURINOL. [Suspect]
     Active Substance: ALLOPURINOL
     Indication: GOUT
     Dosage: 100 MILLIGRAM DAILY;
     Route: 048
     Dates: start: 20150401, end: 20160315
  3. INDOMETACIN [Suspect]
     Active Substance: INDOMETHACIN
     Indication: GOUT
     Dosage: UP TO TWICE DAILY
     Route: 048
     Dates: start: 20150401, end: 20160315

REACTIONS (5)
  - Sepsis [Unknown]
  - Abnormal loss of weight [Unknown]
  - Type 1 diabetes mellitus [Unknown]
  - Vomiting [Unknown]
  - Pancreatitis necrotising [Recovered/Resolved with Sequelae]

NARRATIVE: CASE EVENT DATE: 20150315
